FAERS Safety Report 4808540-8 (Version None)
Quarter: 2005Q4

REPORT INFORMATION
  Report Type: 
  Country: None (occurrence: None)
  Receive Date: 20051021
  Receipt Date: 20040630
  Transmission Date: 20060501
  Serious: No
  Sender: FDA-Public Use
  Company Number: FR_040704382

PATIENT
  Sex: Female

DRUGS (4)
  1. ZYPREXA [Suspect]
     Dosage: 20 MG DAY
  2. DEPAKOTE [Concomitant]
  3. ACETAMINOPHEN [Concomitant]
  4. SPASFON-LYOC (PHLOROGLUCINOL) [Concomitant]

REACTIONS (1)
  - EOSINOPHILIA [None]
